FAERS Safety Report 5280276-1 (Version None)
Quarter: 2007Q1

REPORT INFORMATION
  Report Type: 
  Country: None (occurrence: None)
  Receive Date: 20070329
  Receipt Date: 20070326
  Transmission Date: 20070707
  Serious: Yes (Life-Threatening, Disabling)
  Sender: FDA-Public Use
  Company Number: US-GLAXOSMITHKLINE-A0644649A

PATIENT
  Age: 9 Year
  Sex: Male

DRUGS (2)
  1. AUGMENTIN ES-600 [Suspect]
     Indication: EAR INFECTION
     Dosage: 7.5ML TWICE PER DAY
     Route: 048
     Dates: start: 20070324, end: 20070324
  2. NO CONCURRENT MEDICATION [Concomitant]

REACTIONS (2)
  - PRURITUS [None]
  - SWELLING [None]
